FAERS Safety Report 11467783 (Version 1)
Quarter: 2015Q3

REPORT INFORMATION
  Report Type: Report from Study
  Country: BR (occurrence: BR)
  Receive Date: 20150908
  Receipt Date: 20150908
  Transmission Date: 20151125
  Serious: Yes (Other)
  Sender: FDA-Public Use
  Company Number: PHHY2015BR105816

PATIENT
  Sex: Female

DRUGS (2)
  1. NEOTIAPIM [Suspect]
     Active Substance: QUETIAPINE
     Dosage: 50 MG, QD (TABLET AT THE DINNER)
     Route: 065
  2. NEOTIAPIM [Suspect]
     Active Substance: QUETIAPINE
     Indication: PRODUCT USED FOR UNKNOWN INDICATION
     Dosage: 100 MG, QD (HALF OF TABLET)
     Route: 065

REACTIONS (2)
  - Drug prescribing error [Unknown]
  - Drug administration error [Unknown]
